FAERS Safety Report 23332414 (Version 2)
Quarter: 2024Q1

REPORT INFORMATION
  Report Type: Spontaneous
  Country: CN (occurrence: CN)
  Receive Date: 20231222
  Receipt Date: 20240222
  Transmission Date: 20240410
  Serious: Yes (Other)
  Sender: FDA-Public Use
  Company Number: CN-PFIZER INC-PV202300204245

PATIENT
  Age: 4 Year
  Sex: Male

DRUGS (13)
  1. ZITHROMAX [Suspect]
     Active Substance: AZITHROMYCIN DIHYDRATE
     Indication: Bronchitis
     Dosage: 0.16 G, 1X/DAY
     Route: 048
     Dates: start: 20231127, end: 20231130
  2. AZITHROMYCIN [Suspect]
     Active Substance: AZITHROMYCIN
     Indication: Pneumonia
     Dosage: 0.15 G, 1X/DAY
     Route: 041
     Dates: start: 20231201, end: 20231204
  3. AZITHROMYCIN [Suspect]
     Active Substance: AZITHROMYCIN
     Indication: Mycoplasma infection
  4. AZITHROMYCIN [Suspect]
     Active Substance: AZITHROMYCIN
     Indication: Urticaria
  5. AZITHROMYCIN [Suspect]
     Active Substance: AZITHROMYCIN
     Indication: Coagulopathy
  6. STERILE WATER FOR INJECTION [Concomitant]
     Active Substance: WATER
     Indication: Pneumonia
     Dosage: 10 ML, 1X/DAY
     Route: 061
     Dates: start: 20231201, end: 20231204
  7. STERILE WATER FOR INJECTION [Concomitant]
     Active Substance: WATER
     Indication: Mycoplasma infection
  8. STERILE WATER FOR INJECTION [Concomitant]
     Active Substance: WATER
     Indication: Urticaria
  9. STERILE WATER FOR INJECTION [Concomitant]
     Active Substance: WATER
     Indication: Coagulopathy
  10. VITAMIN B6 [Concomitant]
     Active Substance: PYRIDOXINE HYDROCHLORIDE
     Indication: Pneumonia
     Dosage: 100 MG, 1X/DAY
     Route: 041
     Dates: start: 20231201, end: 20231204
  11. VITAMIN B6 [Concomitant]
     Active Substance: PYRIDOXINE HYDROCHLORIDE
     Indication: Mycoplasma infection
  12. VITAMIN B6 [Concomitant]
     Active Substance: PYRIDOXINE HYDROCHLORIDE
     Indication: Urticaria
  13. VITAMIN B6 [Concomitant]
     Active Substance: PYRIDOXINE HYDROCHLORIDE
     Indication: Coagulopathy

REACTIONS (2)
  - Drug hypersensitivity [Recovered/Resolved]
  - Rash pruritic [Recovered/Resolved]

NARRATIVE: CASE EVENT DATE: 20231127
